FAERS Safety Report 12637267 (Version 1)
Quarter: 2016Q3

REPORT INFORMATION
  Report Type: Spontaneous
  Country: US (occurrence: US)
  Receive Date: 20160809
  Receipt Date: 20160809
  Transmission Date: 20161109
  Serious: No
  Sender: FDA-Public Use
  Company Number: US-BEH-2015054703

PATIENT
  Age: 60 Year
  Sex: Male
  Weight: 154 kg

DRUGS (18)
  1. LEVEMIR [Concomitant]
     Active Substance: INSULIN DETEMIR
  2. OXYCODONE [Concomitant]
     Active Substance: OXYCODONE
  3. MOTILIUM [Concomitant]
     Active Substance: DOMPERIDONE
  4. EPIPEN [Concomitant]
     Active Substance: EPINEPHRINE
     Indication: ANAPHYLACTIC REACTION
  5. CYCLOBENZAPRINE [Concomitant]
     Active Substance: CYCLOBENZAPRINE
  6. METOPROLOL. [Concomitant]
     Active Substance: METOPROLOL
  7. PRIVIGEN [Suspect]
     Active Substance: HUMAN IMMUNOGLOBULIN G
     Indication: CHRONIC INFLAMMATORY DEMYELINATING POLYRADICULONEUROPATHY
     Dosage: AS DIRECTED
     Route: 042
  8. DIPHENHYDRAMINE. [Concomitant]
     Active Substance: DIPHENHYDRAMINE
  9. HEPARIN [Concomitant]
     Active Substance: HEPARIN SODIUM
  10. JANUMET [Concomitant]
     Active Substance: METFORMIN HYDROCHLORIDE\SITAGLIPTIN PHOSPHATE
  11. IBUPROFEN. [Concomitant]
     Active Substance: IBUPROFEN
  12. PREDNISONE. [Concomitant]
     Active Substance: PREDNISONE
  13. SOLU-MEDROL [Concomitant]
     Active Substance: METHYLPREDNISOLONE SODIUM SUCCINATE
  14. HUMALOG [Concomitant]
     Active Substance: INSULIN LISPRO
  15. GABAPENTIN. [Concomitant]
     Active Substance: GABAPENTIN
  16. ACETAMINOPHEN. [Concomitant]
     Active Substance: ACETAMINOPHEN
  17. NORMAL SALINE [Concomitant]
     Active Substance: SODIUM CHLORIDE
  18. AMOXICILLIN. [Concomitant]
     Active Substance: AMOXICILLIN

REACTIONS (1)
  - Chills [Unknown]

NARRATIVE: CASE EVENT DATE: 201510
